FAERS Safety Report 14612492 (Version 1)
Quarter: 2018Q1

REPORT INFORMATION
  Report Type: Spontaneous
  Country: US (occurrence: US)
  Receive Date: 20180308
  Receipt Date: 20180308
  Transmission Date: 20180509
  Serious: No
  Sender: FDA-Public Use
  Company Number: US-AUROBINDO-AUR-APU-2017-00453

PATIENT

DRUGS (1)
  1. METFORMIN HYDROCHLORIDE TABLETS USP 1000 MG [Suspect]
     Active Substance: METFORMIN HYDROCHLORIDE
     Indication: BLOOD GLUCOSE INCREASED
     Dosage: 1 TABLET TWICE A DAY
     Route: 065
     Dates: start: 20160117

REACTIONS (3)
  - Myalgia [Unknown]
  - Hyperhidrosis [Unknown]
  - Pollakiuria [Unknown]
